FAERS Safety Report 6473538-3 (Version None)
Quarter: 2009Q4

REPORT INFORMATION
  Report Type: 
  Country: None (occurrence: None)
  Receive Date: 20091204
  Receipt Date: 20081211
  Transmission Date: 20100525
  Serious: Yes (Hospitalization, Other)
  Sender: FDA-Public Use
  Company Number: US-ELI_LILLY_AND_COMPANY-US200811002182

PATIENT
  Sex: Female
  Weight: 120.64 kg

DRUGS (13)
  1. HUMALOG [Suspect]
     Indication: DIABETES MELLITUS
     Dosage: UNK, AS NEEDED
     Dates: start: 20071101
  2. OMEPRAZOLE [Concomitant]
     Dosage: 40 MG, DAILY (1/D)
  3. MULTI-VITAMINS [Concomitant]
  4. NORTRIPTYLINE [Concomitant]
     Dosage: 20 MG, DAILY (1/D)
  5. LANTUS [Concomitant]
     Dosage: 38 U, UNK
  6. ASPIRIN [Concomitant]
     Dosage: 81 MG, DAILY (1/D)
  7. BENICAR [Concomitant]
     Dosage: 40 MG, DAILY (1/D)
  8. COREG [Concomitant]
     Dosage: 25 MG, 2/D
  9. SYMLIN [Concomitant]
  10. ALDACTONE [Concomitant]
     Dosage: 25 MG, 2/D
  11. SIMVASTATIN [Concomitant]
  12. LASIX [Concomitant]
     Dosage: 20 MG, EACH MORNING
  13. POTASSIUM CHLORIDE [Concomitant]
     Dosage: 20 MEQ, DAILY (1/D)

REACTIONS (5)
  - ANAEMIA [None]
  - HYPERKALAEMIA [None]
  - HYPERTENSION [None]
  - RENAL DISORDER [None]
  - RENAL FAILURE ACUTE [None]
